FAERS Safety Report 9459175 (Version 7)
Quarter: 2013Q4

REPORT INFORMATION
  Report Type: Spontaneous
  Country: JP (occurrence: JP)
  Receive Date: 20130814
  Receipt Date: 20131216
  Transmission Date: 20140711
  Serious: Yes (Hospitalization)
  Sender: FDA-Public Use
  Company Number: JP-B.I. PHARMACEUTICALS,INC./RIDGEFIELD-2013-BI-24313NB

PATIENT
  Age: 80 Year
  Sex: Male
  Weight: 75 kg

DRUGS (8)
  1. PRAZAXA [Suspect]
     Indication: ATRIAL FIBRILLATION
     Dosage: 220 MG
     Route: 048
     Dates: start: 20121105, end: 20121120
  2. XYZAL [Suspect]
     Indication: ECZEMA
     Dosage: 5 MG
     Route: 048
     Dates: end: 20121120
  3. RINDERON [Suspect]
     Indication: ECZEMA
     Dosage: 25 G
     Route: 062
     Dates: end: 20121120
  4. HIRUDOID [Suspect]
     Indication: ECZEMA
     Dosage: 25 G
     Route: 062
     Dates: end: 20121120
  5. NORVASC [Concomitant]
     Indication: HYPERTENSION
     Dosage: 5 MG
     Route: 048
  6. BLOPRESS [Concomitant]
     Indication: HYPERTENSION
     Dosage: 8 MG
     Route: 048
  7. ZYLORIC [Concomitant]
     Indication: HYPERURICAEMIA
     Dosage: 8 MG
     Route: 048
  8. SPIRIVA [Concomitant]
     Indication: CHRONIC OBSTRUCTIVE PULMONARY DISEASE
     Dosage: 2.5 MG
     Route: 055

REACTIONS (1)
  - Drug eruption [Not Recovered/Not Resolved]
